FAERS Safety Report 8428175-8 (Version None)
Quarter: 2012Q2

REPORT INFORMATION
  Report Type: 
  Country: None (occurrence: None)
  Receive Date: 20120611
  Receipt Date: 20120606
  Transmission Date: 20120825
  Serious: No
  Sender: FDA-Public Use
  Company Number: US-PFIZER INC-2012136839

PATIENT
  Sex: Female
  Weight: 57 kg

DRUGS (8)
  1. LYRICA [Suspect]
     Dosage: 150 MG, 2X/DAY
     Route: 048
  2. SYNTHROID [Concomitant]
     Dosage: 88 UG, DAILY
  3. LYRICA [Suspect]
     Dosage: 75 MG, 2X/DAY
     Route: 048
  4. LYRICA [Suspect]
     Dosage: 75 MG, 1X/DAY
     Route: 048
     Dates: start: 20120501, end: 20120601
  5. AMITRIPTYLINE HCL [Suspect]
     Indication: FIBROMYALGIA
     Dosage: UNK
     Dates: end: 20100101
  6. PREMARIN [Concomitant]
     Dosage: UNK
  7. LYRICA [Suspect]
     Indication: FIBROMYALGIA
     Dosage: 75 MG, 2X/DAY
     Route: 048
     Dates: start: 20101220
  8. PREVACID [Concomitant]
     Dosage: 30 MG, DAILY

REACTIONS (8)
  - HEADACHE [None]
  - PAIN [None]
  - SOMNOLENCE [None]
  - DRUG ADMINISTRATION ERROR [None]
  - IRRITABILITY [None]
  - INSOMNIA [None]
  - PAIN OF SKIN [None]
  - ARTHRALGIA [None]
